FAERS Safety Report 5822501-1 (Version None)
Quarter: 2008Q3

REPORT INFORMATION
  Report Type: 
  Country: None (occurrence: None)
  Receive Date: 20080725
  Receipt Date: 20080721
  Transmission Date: 20090109
  Serious: Yes (Other)
  Sender: FDA-Public Use
  Company Number: CA-JNJFOC-20080705250

PATIENT
  Sex: Male

DRUGS (2)
  1. TYLENOL (CAPLET) [Suspect]
     Route: 045
  2. TYLENOL (CAPLET) [Suspect]
     Indication: DRUG USE FOR UNKNOWN INDICATION
     Route: 045

REACTIONS (5)
  - DYSPHONIA [None]
  - INCORRECT DOSE ADMINISTERED [None]
  - INCORRECT ROUTE OF DRUG ADMINISTRATION [None]
  - INTENTIONAL DRUG MISUSE [None]
  - RHINORRHOEA [None]
